FAERS Safety Report 18513760 (Version 4)
Quarter: 2020Q4

REPORT INFORMATION
  Report Type: Report from Study
  Country: None (occurrence: DE)
  Receive Date: 20201118
  Receipt Date: 20201208
  Transmission Date: 20210114
  Serious: Yes (Hospitalization, Disabling)
  Sender: FDA-Public Use
  Company Number: DE-ABBVIE-20K-062-3650571-00

PATIENT
  Age: 17 Year
  Sex: Female
  Weight: 64 kg

DRUGS (6)
  1. MTX [Concomitant]
     Active Substance: METHOTREXATE SODIUM
     Indication: JUVENILE IDIOPATHIC ARTHRITIS
     Route: 058
     Dates: start: 20110201
  2. HUMIRA [Suspect]
     Active Substance: ADALIMUMAB
     Indication: JUVENILE IDIOPATHIC ARTHRITIS
     Route: 058
     Dates: start: 20190212
  3. HUMIRA [Suspect]
     Active Substance: ADALIMUMAB
     Indication: UVEITIS
  4. GLAUPAX [Suspect]
     Active Substance: ACETAZOLAMIDE
     Indication: PRODUCT USED FOR UNKNOWN INDICATION
     Route: 065
     Dates: start: 20190111
  5. MTX [Concomitant]
     Active Substance: METHOTREXATE SODIUM
     Indication: UVEITIS
  6. FOLIC ACID. [Concomitant]
     Active Substance: FOLIC ACID
     Indication: PRODUCT USED FOR UNKNOWN INDICATION
     Dates: start: 20110201

REACTIONS (6)
  - Treatment noncompliance [Unknown]
  - Eye injury [Unknown]
  - Product administration error [Unknown]
  - Visual impairment [Recovered/Resolved with Sequelae]
  - Glaucoma [Recovered/Resolved with Sequelae]
  - Uveitis [Recovered/Resolved with Sequelae]

NARRATIVE: CASE EVENT DATE: 20201015
